FAERS Safety Report 23850465 (Version 1)
Quarter: 2024Q2

REPORT INFORMATION
  Report Type: Other
  Country: US (occurrence: None)
  Receive Date: 20240513
  Receipt Date: 20240513
  Transmission Date: 20240716
  Serious: Yes (Other)
  Sender: FDA-Public Use
  Company Number: US-ROCHE-3556591

PATIENT
  Age: 59 Year
  Sex: Female

DRUGS (14)
  1. OCREVUS [Suspect]
     Active Substance: OCRELIZUMAB
     Indication: Relapsing multiple sclerosis
     Route: 065
     Dates: start: 20210805
  2. AMBIEN [Concomitant]
     Active Substance: ZOLPIDEM TARTRATE
  3. BACLOFEN [Concomitant]
     Active Substance: BACLOFEN
  4. FAMOTIDINE [Concomitant]
     Active Substance: FAMOTIDINE
  5. GABAPENTIN [Concomitant]
     Active Substance: GABAPENTIN
  6. LIPITOR [Concomitant]
     Active Substance: ATORVASTATIN CALCIUM
  7. MONTELUKAST [Concomitant]
     Active Substance: MONTELUKAST SODIUM
  8. OMEPRAZOLE [Concomitant]
     Active Substance: DONEPEZIL HYDROCHLORIDE\OMEPRAZOLE\OMEPRAZOLE MAGNESIUM
  9. FAMOTIDINE [Concomitant]
     Active Substance: FAMOTIDINE
  10. ROPINIROLE [Concomitant]
     Active Substance: ROPINIROLE
  11. TECFIDERA [Concomitant]
     Active Substance: DIMETHYL FUMARATE
  12. TAPROS OPHTHALMIC SOLUTION [Concomitant]
  13. VITAMIN C [Concomitant]
     Active Substance: ASCORBIC ACID
  14. ERGOCALCIFEROL [Concomitant]
     Active Substance: ERGOCALCIFEROL

REACTIONS (2)
  - Malignant melanoma [Unknown]
  - Squamous cell carcinoma [Unknown]

NARRATIVE: CASE EVENT DATE: 20220601
